FAERS Safety Report 8737953 (Version 3)
Quarter: 2013Q3

REPORT INFORMATION
  Report Type: Spontaneous
  Country: US (occurrence: US)
  Receive Date: 20120823
  Receipt Date: 20130919
  Transmission Date: 20140515
  Serious: Yes (Hospitalization, Disabling, Other)
  Sender: FDA-Public Use
  Company Number: US-009507513-1208USA004431

PATIENT
  Sex: Female
  Weight: 84.35 kg

DRUGS (5)
  1. FOSAMAX [Suspect]
     Indication: OSTEOPOROSIS
     Dosage: 10 MG, QD
     Route: 048
     Dates: start: 1996, end: 2010
  2. FOSAMAX [Suspect]
     Dosage: 70 MG, QW
     Route: 048
     Dates: end: 2010
  3. FOSAMAX PLUS D [Suspect]
     Route: 048
  4. FOSAMAX [Suspect]
  5. ALENDRONATE SODIUM [Suspect]
     Dosage: 70 MG, UNK
     Route: 048

REACTIONS (25)
  - Open reduction of fracture [Recovered/Resolved]
  - Intramedullary rod insertion [Unknown]
  - Impaired healing [Unknown]
  - Removal of internal fixation [Unknown]
  - Low turnover osteopathy [Unknown]
  - Anaemia postoperative [Unknown]
  - Femur fracture [Recovering/Resolving]
  - Femur fracture [Unknown]
  - Femur fracture [Unknown]
  - Dizziness [Unknown]
  - Hyperthyroidism [Unknown]
  - Vitamin D deficiency [Unknown]
  - Thyroid neoplasm [Unknown]
  - Hypercholesterolaemia [Unknown]
  - Hypothyroidism [Unknown]
  - Medical device removal [Unknown]
  - Cyst removal [Unknown]
  - Limb injury [Unknown]
  - Treatment failure [Unknown]
  - C-reactive protein increased [Unknown]
  - Red blood cell sedimentation rate increased [Unknown]
  - Gastrointestinal disorder [Unknown]
  - Spinal osteoarthritis [Unknown]
  - Arthralgia [Unknown]
  - Constipation [Unknown]
